FAERS Safety Report 8184557-3 (Version None)
Quarter: 2012Q1

REPORT INFORMATION
  Report Type: 
  Country: None (occurrence: None)
  Receive Date: 20120305
  Receipt Date: 20120222
  Transmission Date: 20120608
  Serious: Yes (Hospitalization, Other)
  Sender: FDA-Public Use
  Company Number: US-MERCK-1111USA01723

PATIENT
  Age: 57 Year
  Sex: Female
  Weight: 74 kg

DRUGS (1)
  1. FOSAMAX [Suspect]
     Indication: OSTEOPOROSIS
     Route: 048
     Dates: start: 20020101, end: 20110101

REACTIONS (18)
  - PNEUMONIA [None]
  - DEPRESSION [None]
  - COLONIC POLYP [None]
  - BASAL CELL CARCINOMA [None]
  - HYPERLIPIDAEMIA [None]
  - TENDONITIS [None]
  - MENISCUS LESION [None]
  - LIGAMENT SPRAIN [None]
  - OSTEOARTHRITIS [None]
  - FOOT FRACTURE [None]
  - SYNOVIAL CYST [None]
  - CAPSULAR CONTRACTURE ASSOCIATED WITH BREAST IMPLANT [None]
  - FEMUR FRACTURE [None]
  - CATARACT [None]
  - HAEMORRHOIDS [None]
  - BUNION [None]
  - ANXIETY [None]
  - CONSTIPATION [None]
